FAERS Safety Report 8966910 (Version 3)
Quarter: 2013Q4

REPORT INFORMATION
  Report Type: Report from Study
  Country: DE (occurrence: DE)
  Receive Date: 20121214
  Receipt Date: 20131007
  Transmission Date: 20140711
  Serious: Yes (Life-Threatening, Hospitalization, Other)
  Sender: FDA-Public Use
  Company Number: DE-BRISTOL-MYERS SQUIBB COMPANY-17209180

PATIENT
  Age: 66 Year
  Sex: Male

DRUGS (17)
  1. BLINDED: IPILIMUMAB [Suspect]
     Indication: NON-SMALL CELL LUNG CANCER
     Route: 042
     Dates: start: 20121128, end: 20121128
  2. CARBOPLATIN [Suspect]
     Indication: NON-SMALL CELL LUNG CANCER
     Route: 042
     Dates: start: 20121017, end: 20121128
  3. PACLITAXEL [Suspect]
     Indication: NON-SMALL CELL LUNG CANCER
     Route: 042
     Dates: start: 20121017, end: 20121128
  4. BLINDED: PLACEBO [Suspect]
     Indication: NON-SMALL CELL LUNG CANCER
     Route: 042
     Dates: start: 20121128, end: 20121128
  5. SITAGLIPTIN PHOSPHATE [Concomitant]
     Route: 048
     Dates: start: 2012, end: 20121214
  6. METFORMIN [Concomitant]
     Route: 048
     Dates: start: 2006, end: 20121210
  7. GLIMEPIRIDE [Concomitant]
     Route: 048
     Dates: start: 2006, end: 20121214
  8. ACETYLSALICYLIC ACID [Concomitant]
     Dosage: INTERRUPTED 10DEC12 TO 13DEC12
     Route: 048
     Dates: start: 201005
  9. BISOPROLOL [Concomitant]
     Route: 048
     Dates: start: 201005, end: 20121215
  10. DELIX PLUS [Concomitant]
     Route: 048
     Dates: start: 201005, end: 20121210
  11. METAMIZOLE [Concomitant]
     Route: 048
     Dates: start: 2007, end: 20121215
  12. ALLOPURINOL [Concomitant]
     Route: 048
     Dates: start: 2008, end: 20121211
  13. GRANISETRON [Concomitant]
     Route: 048
     Dates: start: 20121017, end: 20121210
  14. TILIDINE [Concomitant]
     Route: 048
     Dates: start: 20121017, end: 20121217
  15. METOCLOPRAMIDE [Concomitant]
     Route: 048
     Dates: start: 20121017, end: 20121210
  16. RAMIPRIL [Concomitant]
     Dates: start: 2010, end: 20121210
  17. APREPITANT [Concomitant]
     Dates: start: 20121017, end: 20121109

REACTIONS (3)
  - Arrhythmia [Recovered/Resolved]
  - Cardiogenic shock [Recovered/Resolved]
  - Myocardial infarction [Unknown]
